FAERS Safety Report 18294458 (Version 1)
Quarter: 2020Q3

REPORT INFORMATION
  Report Type: Spontaneous
  Country: US (occurrence: US)
  Receive Date: 20200922
  Receipt Date: 20200922
  Transmission Date: 20201103
  Serious: Yes (Life-Threatening)
  Sender: FDA-Public Use
  Company Number: None

PATIENT
  Age: 45 Year
  Sex: Male
  Weight: 78.75 kg

DRUGS (1)
  1. KETAMINE [Suspect]
     Active Substance: KETAMINE
     Indication: AGITATION
     Dosage: ?          OTHER FREQUENCY:ONCE;?
     Route: 030
     Dates: start: 20200920, end: 20200920

REACTIONS (5)
  - Seizure [None]
  - Laryngeal oedema [None]
  - Bruxism [None]
  - Respiratory arrest [None]
  - Drooling [None]

NARRATIVE: CASE EVENT DATE: 20200920
